FAERS Safety Report 24466953 (Version 1)
Quarter: 2024Q4

REPORT INFORMATION
  Report Type: Report from Study
  Country: US (occurrence: US)
  Receive Date: 20241018
  Receipt Date: 20241018
  Transmission Date: 20250114
  Serious: No
  Sender: ROCHE
  Company Number: US-ROCHE-3553840

PATIENT
  Age: 63 Year
  Sex: Female
  Weight: 103.0 kg

DRUGS (1)
  1. XOLAIR [Suspect]
     Active Substance: OMALIZUMAB
     Indication: Asthma
     Route: 058
     Dates: start: 20240412

REACTIONS (9)
  - Off label use [Unknown]
  - Blood immunoglobulin E increased [Unknown]
  - Wheezing [Unknown]
  - White blood cell count decreased [Unknown]
  - Red blood cell count increased [Unknown]
  - Haemoglobin increased [Unknown]
  - Haematocrit increased [Unknown]
  - Mean cell volume decreased [Unknown]
  - Mean cell haemoglobin concentration increased [Unknown]
